FAERS Safety Report 6805347-7 (Version None)
Quarter: 2010Q2

REPORT INFORMATION
  Report Type: 
  Country: None (occurrence: None)
  Receive Date: 20100628
  Receipt Date: 20071018
  Transmission Date: 20101027
  Serious: No
  Sender: FDA-Public Use
  Company Number: US-PFIZER INC-2007088083

PATIENT
  Age: 17 Year
  Sex: Female

DRUGS (5)
  1. GEODON [Suspect]
  2. LITHIUM [Concomitant]
  3. CELEXA [Concomitant]
  4. COGENTIN [Concomitant]
  5. GEODON [Concomitant]

REACTIONS (1)
  - GALACTORRHOEA [None]
